FAERS Safety Report 6733671-5 (Version None)
Quarter: 2010Q2

REPORT INFORMATION
  Report Type: 
  Country: None (occurrence: None)
  Receive Date: 20100520
  Receipt Date: 20100519
  Transmission Date: 20101027
  Serious: No
  Sender: FDA-Public Use
  Company Number: US-B.I. PHARMACEUTICALS,INC./RIDGEFIELD-2010-BP-03686BP

PATIENT
  Sex: Female

DRUGS (13)
  1. MIRAPEX [Suspect]
     Indication: PARKINSON'S DISEASE
     Dosage: 1.5 MG
     Route: 048
     Dates: start: 20100301
  2. MIRAPEX [Suspect]
     Dosage: 0.75 MG
     Route: 048
     Dates: start: 20100317
  3. MIRAPEX [Suspect]
     Dosage: 0.375 MG
     Route: 048
     Dates: start: 20100307, end: 20100316
  4. MIRAPEX [Suspect]
     Dosage: 0.75 MG
     Route: 048
     Dates: start: 20100501, end: 20100501
  5. MIRAPEX [Suspect]
     Dosage: 7.5 MG
     Route: 048
  6. SYNTHROID [Concomitant]
     Indication: HYPOTHYROIDISM
     Dosage: 88 MCG
  7. XANAX [Concomitant]
     Indication: ANXIETY
     Dates: start: 20090101, end: 20100101
  8. CELEXA [Concomitant]
     Indication: DEPRESSION
     Dosage: 20 MG
     Dates: start: 20100101
  9. LIPITOR [Concomitant]
     Indication: BLOOD CHOLESTEROL INCREASED
     Dosage: 10 MG
  10. KLONOPIN [Concomitant]
     Indication: ANXIETY
     Dosage: 1.5 MG
     Dates: start: 20100501
  11. SINEMET CR [Concomitant]
     Indication: PARKINSON'S DISEASE
  12. SINEMET [Concomitant]
     Indication: PARKINSON'S DISEASE
  13. COMTAN [Concomitant]
     Indication: PARKINSON'S DISEASE
     Dosage: 1400 MG

REACTIONS (21)
  - ANXIETY [None]
  - ASTHENIA [None]
  - DYSKINESIA [None]
  - DYSPNOEA [None]
  - FAECES HARD [None]
  - HALLUCINATION, VISUAL [None]
  - HYPOTHYROIDISM [None]
  - LACRIMATION INCREASED [None]
  - MUSCLE MASS [None]
  - MUSCLE RIGIDITY [None]
  - MUSCLE TWITCHING [None]
  - MUSCULAR WEAKNESS [None]
  - MUSCULOSKELETAL STIFFNESS [None]
  - NAUSEA [None]
  - NERVOUSNESS [None]
  - PAIN IN EXTREMITY [None]
  - PALPITATIONS [None]
  - SOMNOLENCE [None]
  - SUDDEN ONSET OF SLEEP [None]
  - URINARY RETENTION [None]
  - WEIGHT DECREASED [None]
